FAERS Safety Report 14369357 (Version 1)
Quarter: 2018Q1

REPORT INFORMATION
  Report Type: Spontaneous
  Country: CN (occurrence: CN)
  Receive Date: 20180109
  Receipt Date: 20180109
  Transmission Date: 20180509
  Serious: Yes (Other)
  Sender: FDA-Public Use
  Company Number: CN-BAXTER-2018BAX000565

PATIENT
  Age: 68 Year
  Sex: Female
  Weight: 55 kg

DRUGS (11)
  1. NEUTRAL INSULIN INJECTION [Suspect]
     Active Substance: INSULIN PORK\INSULIN PURIFIED PORK
     Indication: FACIAL BONES FRACTURE
     Dosage: 3 UNITS
     Route: 041
     Dates: start: 20171107, end: 20171107
  2. VITAMIN C INJECTION [Suspect]
     Active Substance: ASCORBIC ACID
     Indication: FACIAL BONES FRACTURE
     Route: 041
     Dates: start: 20171107, end: 20171107
  3. MEILINGGE (DEXTROSE\POTASSIUM\SODIUM CHLORIDE) [Suspect]
     Active Substance: DEXTROSE\POTASSIUM CHLORIDE\SODIUM CHLORIDE
     Indication: FACIAL BONES FRACTURE
     Route: 041
     Dates: start: 20171107, end: 20171107
  4. MUCOSOLVAN [Suspect]
     Active Substance: AMBROXOL HYDROCHLORIDE
     Indication: LUNG INFECTION
     Route: 041
     Dates: start: 20171107, end: 20171109
  5. SODIUM CHLORIDE. [Suspect]
     Active Substance: SODIUM CHLORIDE
     Indication: MEDICATION DILUTION
     Route: 041
     Dates: start: 20171107, end: 20171107
  6. HAOQIANG (PYRIDOXINE HYDROCHLORIDE) [Suspect]
     Active Substance: PYRIDOXINE HYDROCHLORIDE
     Indication: FACIAL BONES FRACTURE
     Route: 041
     Dates: start: 20171107, end: 20171107
  7. SODIUM CHLORIDE. [Suspect]
     Active Substance: SODIUM CHLORIDE
     Indication: MEDICATION DILUTION
     Route: 041
     Dates: start: 20171107, end: 20171107
  8. GLUCOSE INJECTION [Suspect]
     Active Substance: DEXTROSE
     Indication: MEDICATION DILUTION
     Route: 041
     Dates: start: 20171107, end: 20171107
  9. 20% MANNITOL INJECTION [Suspect]
     Active Substance: MANNITOL
     Indication: FACIAL BONES FRACTURE
     Route: 041
     Dates: start: 20171107, end: 20171107
  10. DOXOFYLLINE [Suspect]
     Active Substance: DOXOFYLLINE
     Indication: LUNG INFECTION
     Route: 041
     Dates: start: 20171107, end: 20171108
  11. SODIUM CHLORIDE. [Suspect]
     Active Substance: SODIUM CHLORIDE
     Route: 041
     Dates: start: 20171107, end: 20171109

REACTIONS (2)
  - Swelling [Recovered/Resolved]
  - Lip erythema [Recovered/Resolved]

NARRATIVE: CASE EVENT DATE: 20171107
